FAERS Safety Report 12883258 (Version 2)
Quarter: 2016Q4

REPORT INFORMATION
  Report Type: Spontaneous
  Country: US (occurrence: US)
  Receive Date: 20161025
  Receipt Date: 20161125
  Transmission Date: 20170207
  Serious: Yes (Other)
  Sender: FDA-Public Use
  Company Number: US-009507513-1610USA011595

PATIENT
  Age: 19 Year
  Sex: Female
  Weight: 98.87 kg

DRUGS (3)
  1. NEXPLANON [Suspect]
     Active Substance: ETONOGESTREL
     Indication: CONTRACEPTION
     Dosage: 1 DF, UNK, IN THE RIGHT ARM
     Route: 059
     Dates: start: 20141124
  2. NEXPLANON [Suspect]
     Active Substance: ETONOGESTREL
     Dosage: 1 DF, UNK, IN THE LEFT ARM
     Route: 059
     Dates: start: 2011, end: 201410
  3. NOVOLOG [Concomitant]
     Active Substance: INSULIN ASPART
     Dosage: UNK

REACTIONS (5)
  - Unintended pregnancy [Unknown]
  - Scar [Unknown]
  - Weight increased [Unknown]
  - Pregnancy with implant contraceptive [Unknown]
  - Complication associated with device [Not Recovered/Not Resolved]

NARRATIVE: CASE EVENT DATE: 201410
